FAERS Safety Report 21223866 (Version 1)
Quarter: 2022Q3

REPORT INFORMATION
  Report Type: Spontaneous
  Country: US (occurrence: None)
  Receive Date: 20220817
  Receipt Date: 20220817
  Transmission Date: 20221026
  Serious: No
  Sender: FDA-Public Use
  Company Number: None

PATIENT
  Age: 63 Year
  Sex: Female
  Weight: 85.28 kg

DRUGS (1)
  1. REMICADE [Suspect]
     Active Substance: INFLIXIMAB
     Indication: Psoriatic arthropathy
     Dosage: OTHER QUANTITY : 10MG/KG (860MG);?OTHER FREQUENCY : EVERY 6 WEEKS;?
     Route: 042
     Dates: start: 201811

REACTIONS (2)
  - Therapy interrupted [None]
  - Lung disorder [None]
